FAERS Safety Report 6344170-7 (Version None)
Quarter: 2009Q3

REPORT INFORMATION
  Report Type: 
  Country: None (occurrence: None)
  Receive Date: 20090903
  Receipt Date: 20090903
  Transmission Date: 20100115
  Serious: Yes (Hospitalization)
  Sender: FDA-Public Use
  Company Number: None

PATIENT
  Sex: Male
  Weight: 133 kg

DRUGS (1)
  1. FLUTAMIDE [Suspect]
     Dosage: 6500 MG

REACTIONS (11)
  - ABDOMINAL PAIN [None]
  - ASTHENIA [None]
  - CHEST DISCOMFORT [None]
  - DIARRHOEA [None]
  - ESCHERICHIA URINARY TRACT INFECTION [None]
  - HAEMATOCHEZIA [None]
  - HYPOTENSION [None]
  - NAUSEA [None]
  - PYELONEPHRITIS [None]
  - VIRAL INFECTION [None]
  - VOMITING [None]
